FAERS Safety Report 4677005-9 (Version None)
Quarter: 2005Q2

REPORT INFORMATION
  Report Type: 
  Country: None (occurrence: None)
  Receive Date: 20050526
  Receipt Date: 20050516
  Transmission Date: 20051028
  Serious: Yes (Other)
  Sender: FDA-Public Use
  Company Number: 2005076430

PATIENT
  Age: 55 Year
  Sex: Female

DRUGS (1)
  1. DILANTIN KAPSEAL [Suspect]
     Indication: GRAND MAL CONVULSION
     Dosage: 300 MG, ORAL
     Route: 048
     Dates: start: 20050401, end: 20050501

REACTIONS (3)
  - GINGIVAL SWELLING [None]
  - MOUTH ULCERATION [None]
  - SWELLING FACE [None]
